FAERS Safety Report 8141070-7 (Version None)
Quarter: 2012Q1

REPORT INFORMATION
  Report Type: 
  Country: None (occurrence: None)
  Receive Date: 20120216
  Receipt Date: 20120213
  Transmission Date: 20120608
  Serious: No
  Sender: FDA-Public Use
  Company Number: US-BAYER-2012-015214

PATIENT
  Age: 68 Year
  Sex: Female

DRUGS (1)
  1. ALEVE (CAPLET) [Suspect]
     Dosage: 1 U, ONCE
     Route: 048
     Dates: start: 20120213, end: 20120213

REACTIONS (2)
  - HEART RATE INCREASED [None]
  - FEELING JITTERY [None]
